FAERS Safety Report 9361204 (Version 2)
Quarter: 2013Q3

REPORT INFORMATION
  Report Type: Report from Study
  Country: FR (occurrence: FR)
  Receive Date: 20130621
  Receipt Date: 20130715
  Transmission Date: 20140515
  Serious: Yes (Hospitalization)
  Sender: FDA-Public Use
  Company Number: FR-BRISTOL-MYERS SQUIBB COMPANY-19008390

PATIENT
  Age: 72 Year
  Sex: Female

DRUGS (5)
  1. PACLITAXEL [Suspect]
     Indication: NEOPLASM
     Dosage: 04JUN2013?LAST DOSE:28MAY13?CYC:1 DAY 8?INTER ON 8JUN13
     Route: 042
     Dates: start: 20130521
  2. LEVOTHYROX [Concomitant]
  3. INNOHEP [Concomitant]
     Dates: start: 20120820
  4. ELISOR [Concomitant]
  5. LEXOMIL [Concomitant]

REACTIONS (3)
  - Pleural effusion [Not Recovered/Not Resolved]
  - Pyrexia [Unknown]
  - Asthenia [Not Recovered/Not Resolved]
